FAERS Safety Report 19214626 (Version 1)
Quarter: 2021Q2

REPORT INFORMATION
  Report Type: Spontaneous
  Country: IT (occurrence: IT)
  Receive Date: 20210504
  Receipt Date: 20210504
  Transmission Date: 20210717
  Serious: Yes (Other)
  Sender: FDA-Public Use
  Company Number: IT-CELGENEUS-ITA-20210406353

PATIENT
  Age: 69 Year
  Sex: Female

DRUGS (5)
  1. FAMOTIDINE. [Concomitant]
     Active Substance: FAMOTIDINE
     Indication: ANTIALLERGIC THERAPY
     Route: 065
  2. ABRAXANE [Suspect]
     Active Substance: PACLITAXEL
     Indication: BREAST CANCER
     Route: 041
     Dates: start: 20210126
  3. ONDANSETRON HYDROCHLORIDE. [Concomitant]
     Active Substance: ONDANSETRON HYDROCHLORIDE
     Indication: VOMITING
     Route: 065
  4. DEXAMETHASONE. [Concomitant]
     Active Substance: DEXAMETHASONE
     Indication: ANTIINFLAMMATORY THERAPY
     Route: 065
  5. TRASTUZUMAB. [Suspect]
     Active Substance: TRASTUZUMAB
     Indication: BREAST CANCER
     Route: 065
     Dates: start: 20210301

REACTIONS (12)
  - Abdominal distension [Recovering/Resolving]
  - Middle insomnia [Recovering/Resolving]
  - Pruritus [Recovering/Resolving]
  - Agitation [Recovering/Resolving]
  - Stomatitis [Recovering/Resolving]
  - Leukopenia [Recovering/Resolving]
  - Hypersensitivity [Recovering/Resolving]
  - Aphthous ulcer [Recovering/Resolving]
  - Hypergeusia [Recovering/Resolving]
  - Thirst [Recovering/Resolving]
  - Nervousness [Recovering/Resolving]
  - Alopecia [Recovering/Resolving]

NARRATIVE: CASE EVENT DATE: 20210301
